FAERS Safety Report 14608264 (Version 1)
Quarter: 2018Q1

REPORT INFORMATION
  Report Type: Spontaneous
  Country: CH (occurrence: CH)
  Receive Date: 20180307
  Receipt Date: 20180307
  Transmission Date: 20180509
  Serious: Yes (Other)
  Sender: FDA-Public Use
  Company Number: CH-AMGEN-CHESP2017193404

PATIENT

DRUGS (1)
  1. PROLIA [Suspect]
     Active Substance: DENOSUMAB
     Indication: PRODUCT USED FOR UNKNOWN INDICATION
     Dosage: UNK
     Route: 065
     Dates: start: 20171027

REACTIONS (7)
  - Myalgia [Not Recovered/Not Resolved]
  - Pulpitis dental [Unknown]
  - Bone loss [Unknown]
  - Gingivitis [Unknown]
  - Nasal disorder [Not Recovered/Not Resolved]
  - Eye pain [Unknown]
  - Back pain [Unknown]
